FAERS Safety Report 12476315 (Version 1)
Quarter: 2016Q2

REPORT INFORMATION
  Report Type: Spontaneous
  Country: DE (occurrence: DE)
  Receive Date: 20160617
  Receipt Date: 20160617
  Transmission Date: 20160815
  Serious: Yes (Hospitalization)
  Sender: FDA-Public Use
  Company Number: DE-PFIZER INC-2016296128

PATIENT
  Age: 87 Year
  Sex: Female

DRUGS (19)
  1. LORAZEPAM. [Suspect]
     Active Substance: LORAZEPAM
     Dosage: 2 MG, DAILY
     Route: 048
     Dates: start: 20150610, end: 20150616
  2. LORAZEPAM. [Suspect]
     Active Substance: LORAZEPAM
     Dosage: 3.5 MG, DAILY
     Route: 048
     Dates: start: 20150623
  3. TRAZODONE [Suspect]
     Active Substance: TRAZODONE HYDROCHLORIDE
     Dosage: 75 MG, DAILY
     Route: 048
     Dates: start: 20150702
  4. MELPERONE [Suspect]
     Active Substance: MELPERONE
     Dosage: 100 MG, DAILY
     Route: 048
     Dates: start: 2014, end: 20150702
  5. XARELTO [Concomitant]
     Active Substance: RIVAROXABAN
     Dosage: 15 MG, DAILY
     Route: 048
     Dates: start: 20130226, end: 20150702
  6. LORAZEPAM. [Suspect]
     Active Substance: LORAZEPAM
     Dosage: 4 MG, DAILY
     Route: 048
     Dates: start: 20150624
  7. LORAZEPAM. [Suspect]
     Active Substance: LORAZEPAM
     Dosage: 3 MG, DAILY
     Route: 048
     Dates: start: 20150625, end: 20150626
  8. LORAZEPAM. [Suspect]
     Active Substance: LORAZEPAM
     Dosage: 3.5 MG, DAILY
     Dates: start: 20150701
  9. NOVAMINSULFON [Concomitant]
     Active Substance: METAMIZOLE
     Dosage: 2000 MG, DAILY
     Route: 048
     Dates: start: 2014, end: 20150702
  10. TRAZODONE [Suspect]
     Active Substance: TRAZODONE HYDROCHLORIDE
     Dosage: 50 MG, DAILY
     Route: 048
     Dates: start: 20150623, end: 20150701
  11. LORAZEPAM. [Suspect]
     Active Substance: LORAZEPAM
     Dosage: 2.5 MG, DAILY
     Route: 048
     Dates: start: 20150617, end: 20150622
  12. LORAZEPAM. [Suspect]
     Active Substance: LORAZEPAM
     Dosage: 3 MG, DAILY
     Dates: start: 20150629, end: 20150630
  13. FUROSEMIDE. [Suspect]
     Active Substance: FUROSEMIDE
     Dosage: 20 MG, DAILY
     Route: 048
     Dates: start: 2013, end: 20150702
  14. CIATYL [Suspect]
     Active Substance: CLOPENTHIXOL HYDROCHLORIDE
     Dosage: 2 MG, DAILY
     Route: 048
     Dates: start: 20150623, end: 20150701
  15. CIATYL [Suspect]
     Active Substance: CLOPENTHIXOL HYDROCHLORIDE
     Dosage: 3 MG, DAILY
     Route: 048
     Dates: start: 20150702
  16. LORAZEPAM. [Suspect]
     Active Substance: LORAZEPAM
     Dosage: 4 MG, DAILY
     Dates: start: 20150627, end: 20150628
  17. BISOPROLOL FUMARATE. [Suspect]
     Active Substance: BISOPROLOL FUMARATE
     Dosage: 10 MG, 1X/DAY
     Route: 048
     Dates: start: 2013, end: 20150702
  18. LORAZEPAM. [Suspect]
     Active Substance: LORAZEPAM
     Dosage: 2 MG, DAILY
     Dates: start: 20150702
  19. PANTOPRAZOLE [Concomitant]
     Active Substance: PANTOPRAZOLE SODIUM
     Dosage: 20 MG, DAILY
     Route: 048
     Dates: start: 20130403, end: 20150702

REACTIONS (3)
  - Arthralgia [Unknown]
  - Fall [Unknown]
  - Haematoma [Unknown]

NARRATIVE: CASE EVENT DATE: 20150628
